FAERS Safety Report 23990425 (Version 2)
Quarter: 2024Q3

REPORT INFORMATION
  Report Type: Other
  Country: US (occurrence: US)
  Receive Date: 20240619
  Receipt Date: 20240715
  Transmission Date: 20241016
  Serious: No
  Sender: TRAVERE THERAPEUTICS
  Company Number: US-TRAVERE-2024TVT00518

PATIENT
  Age: 43 Year
  Sex: Male

DRUGS (1)
  1. FILSPARI [Suspect]
     Active Substance: SPARSENTAN
     Indication: IgA nephropathy
     Route: 048
     Dates: start: 20240518

REACTIONS (4)
  - Abdominal pain upper [None]
  - Nausea [None]
  - Muscle spasms [None]
  - Vomiting [Unknown]

NARRATIVE: CASE EVENT DATE: 20240521
